FAERS Safety Report 11374850 (Version 1)
Quarter: 2015Q3

REPORT INFORMATION
  Report Type: Spontaneous
  Country: US (occurrence: None)
  Receive Date: 20150812
  Receipt Date: 20150812
  Transmission Date: 20151125
  Serious: Yes (Other)
  Sender: FDA-Public Use
  Company Number: None

PATIENT
  Age: 52 Year
  Sex: Male
  Weight: 81.8 kg

DRUGS (5)
  1. FLUTICASONE [Concomitant]
     Active Substance: FLUTICASONE\FLUTICASONE PROPIONATE
  2. ENOXAPARIN [Concomitant]
     Active Substance: ENOXAPARIN
  3. TYLENOL [Concomitant]
     Active Substance: ACETAMINOPHEN
  4. SYRINGE INJECT [Concomitant]
  5. ELIQUIS [Suspect]
     Active Substance: APIXABAN
     Indication: PULMONARY EMBOLISM
     Route: 048
     Dates: start: 20141119, end: 20150519

REACTIONS (1)
  - Tremor [None]

NARRATIVE: CASE EVENT DATE: 20141220
